FAERS Safety Report 5114891-2 (Version None)
Quarter: 2006Q3

REPORT INFORMATION
  Report Type: 
  Country: None (occurrence: None)
  Receive Date: 20060921
  Receipt Date: 20060912
  Transmission Date: 20061208
  Serious: Yes (Other)
  Sender: FDA-Public Use
  Company Number: 2006111209

PATIENT
  Age: 31 Year
  Sex: Male

DRUGS (2)
  1. SERTRALINE [Suspect]
     Indication: DEPRESSION
     Dosage: 150 MG
  2. FINASTERIDE [Concomitant]

REACTIONS (5)
  - EPISTAXIS [None]
  - HYPERTENSION [None]
  - PLATELET AGGREGATION ABNORMAL [None]
  - POST PROCEDURAL COMPLICATION [None]
  - POST PROCEDURAL HAEMORRHAGE [None]
